FAERS Safety Report 8037269-0 (Version None)
Quarter: 2012Q1

REPORT INFORMATION
  Report Type: 
  Country: None (occurrence: None)
  Receive Date: 20120111
  Receipt Date: 20120109
  Transmission Date: 20120608
  Serious: Yes (Death, Hospitalization, Other)
  Sender: FDA-Public Use
  Company Number: ES-MERCK-1201ESP00002

PATIENT
  Age: 80 Year
  Sex: Male

DRUGS (3)
  1. LACTULOSE [Concomitant]
     Indication: HEPATIC FUNCTION ABNORMAL
     Route: 048
     Dates: start: 20120103
  2. LEVETIRACETAM [Concomitant]
     Indication: CONVULSION PROPHYLAXIS
     Route: 048
  3. INVANZ [Suspect]
     Indication: ESCHERICHIA URINARY TRACT INFECTION
     Route: 042
     Dates: start: 20111201, end: 20120105

REACTIONS (7)
  - LEUKOENCEPHALOPATHY [None]
  - AMMONIA INCREASED [None]
  - DISORIENTATION [None]
  - STATUS EPILEPTICUS [None]
  - RESPIRATORY DEPRESSION [None]
  - AGITATION [None]
  - ANIMAL PHOBIA [None]
